FAERS Safety Report 5563257-X (Version None)
Quarter: 2007Q4

REPORT INFORMATION
  Report Type: 
  Country: None (occurrence: None)
  Receive Date: 20071217
  Receipt Date: 20071205
  Transmission Date: 20080405
  Serious: Yes (Other)
  Sender: FDA-Public Use
  Company Number: US-TYCO HEALTHCARE/MALLINCKRODT-T200701515

PATIENT

DRUGS (6)
  1. METHADONE HCL [Suspect]
     Indication: NECK PAIN
     Dosage: 20 MG, EVERY 4 HOURS
     Route: 048
     Dates: start: 20071112
  2. METHADONE HCL [Suspect]
     Indication: BACK PAIN
  3. METHADOSE DISPERSIBLE [Suspect]
     Indication: NECK PAIN
     Dosage: 40 MG TID AND 20 MG AT NIGHT
     Route: 048
     Dates: start: 20071001, end: 20071111
  4. METHADOSE DISPERSIBLE [Suspect]
     Indication: BACK PAIN
     Dosage: 20 MG, QID
     Route: 048
     Dates: start: 20071001, end: 20070101
  5. ADVAIR DISKUS 100/50 [Concomitant]
     Indication: BRONCHITIS CHRONIC
     Dosage: 100/50 MG, BID
     Route: 048
     Dates: start: 20050101
  6. BUSPAR [Concomitant]
     Indication: PANIC ATTACK
     Dosage: 10 MG, HS
     Route: 048

REACTIONS (12)
  - BLOOD PRESSURE FLUCTUATION [None]
  - CHEST DISCOMFORT [None]
  - CHEST PAIN [None]
  - DECREASED APPETITE [None]
  - DIZZINESS [None]
  - DRUG INEFFECTIVE [None]
  - DRUG WITHDRAWAL SYNDROME [None]
  - DYSPNOEA [None]
  - EXTRASYSTOLES [None]
  - FATIGUE [None]
  - FEELING JITTERY [None]
  - WEIGHT DECREASED [None]
